FAERS Safety Report 10253766 (Version 1)
Quarter: 2014Q2

REPORT INFORMATION
  Report Type: Not Available
  Country: None (occurrence: US)
  Receive Date: 20140623
  Receipt Date: 20140623
  Transmission Date: 20141212
  Serious: Yes (Hospitalization)
  Sender: FDA-Public Use
  Company Number: US-ONYX-2014-1373

PATIENT
  Age: 52 Year
  Sex: Female

DRUGS (9)
  1. KYPROLIS [Suspect]
     Indication: PLASMA CELL MYELOMA
     Route: 042
     Dates: start: 201403
  2. IVIG [Concomitant]
     Indication: IMMUNE SYSTEM DISORDER
  3. ACYCLOVIR [Concomitant]
     Indication: HERPES VIRUS INFECTION
  4. B 12 [Concomitant]
     Indication: VITAMIN SUPPLEMENTATION
  5. SULFA [Concomitant]
     Indication: INFECTION PROPHYLAXIS
  6. OMEPRAZOLE [Concomitant]
     Indication: DYSPEPSIA
  7. SPIRIVA [Concomitant]
     Indication: ASTHMA
  8. ZYRTEC [Concomitant]
     Indication: SEASONAL ALLERGY
  9. FUROSEMIDE [Concomitant]
     Indication: OEDEMA

REACTIONS (5)
  - Influenza [Recovering/Resolving]
  - Chest pain [Recovering/Resolving]
  - Immunodeficiency [Recovering/Resolving]
  - Urticaria [Recovering/Resolving]
  - Dyspnoea [Recovered/Resolved]
